FAERS Safety Report 10245628 (Version 1)
Quarter: 2014Q2

REPORT INFORMATION
  Report Type: Spontaneous
  Country: GR (occurrence: GR)
  Receive Date: 20140619
  Receipt Date: 20140619
  Transmission Date: 20141212
  Serious: Yes (Other)
  Sender: FDA-Public Use
  Company Number: GR-ROCHE-1420604

PATIENT
  Age: 42 Year
  Sex: Female

DRUGS (1)
  1. XENICAL [Suspect]
     Indication: WEIGHT DECREASED
     Dosage: AFTER EVERY MEAL
     Route: 065
     Dates: start: 2002, end: 2004

REACTIONS (1)
  - Glomerulonephritis [Unknown]
